FAERS Safety Report 7738185-1 (Version None)
Quarter: 2011Q3

REPORT INFORMATION
  Report Type: 
  Country: None (occurrence: None)
  Receive Date: 20110908
  Receipt Date: 20110824
  Transmission Date: 20111222
  Serious: Yes (Other)
  Sender: FDA-Public Use
  Company Number: JP-PFIZER INC-2011172277

PATIENT
  Age: 60 Year
  Sex: Female

DRUGS (7)
  1. CELECOXIB [Suspect]
     Indication: MUSCULOSKELETAL PAIN
     Dosage: 400 MG, DAILY
     Route: 048
  2. PREDNISOLONE [Concomitant]
  3. MAGNESIUM SULFATE [Concomitant]
  4. NEORAL [Concomitant]
  5. ADALAT [Concomitant]
  6. PLETAL [Concomitant]
  7. OMEPRAZOLE [Concomitant]

REACTIONS (4)
  - CARDIAC FUNCTION TEST ABNORMAL [None]
  - BLOOD PRESSURE INCREASED [None]
  - DIZZINESS [None]
  - CARDIAC HYPERTROPHY [None]
